FAERS Safety Report 14464085 (Version 1)
Quarter: 2018Q1

REPORT INFORMATION
  Report Type: Other
  Country: US (occurrence: US)
  Receive Date: 20180130
  Receipt Date: 20180130
  Transmission Date: 20180509
  Serious: Yes (Disabling, Other)
  Sender: FDA-Public Use
  Company Number: US-ACORDA-ACO_134924_2017

PATIENT
  Sex: Female

DRUGS (3)
  1. AMPYRA [Suspect]
     Active Substance: DALFAMPRIDINE
     Indication: MULTIPLE SCLEROSIS
  2. AMPYRA [Suspect]
     Active Substance: DALFAMPRIDINE
     Indication: GAIT DISTURBANCE
     Dosage: UNK
     Route: 048
     Dates: start: 20170325
  3. AMPYRA [Suspect]
     Active Substance: DALFAMPRIDINE
     Indication: URINARY INCONTINENCE
     Dosage: 10MG Q12HRS
     Route: 048
     Dates: start: 20170202, end: 20170306

REACTIONS (6)
  - Therapeutic response unexpected [Unknown]
  - Gait inability [Not Recovered/Not Resolved]
  - Off label use [Unknown]
  - Wheelchair user [Not Recovered/Not Resolved]
  - Spinal disorder [Not Recovered/Not Resolved]
  - Therapy cessation [Unknown]
